FAERS Safety Report 6187569-4 (Version None)
Quarter: 2009Q2

REPORT INFORMATION
  Report Type: 
  Country: None (occurrence: None)
  Receive Date: 20090508
  Receipt Date: 20090429
  Transmission Date: 20091009
  Serious: Yes (Life-Threatening, Hospitalization)
  Sender: FDA-Public Use
  Company Number: 2009-195791-NL

PATIENT
  Age: 78 Year
  Sex: Male

DRUGS (17)
  1. ROCURONIUM BROMIDE [Suspect]
     Indication: INDUCTION OF ANAESTHESIA
     Dosage: INTRAVENOUS (NOS)
     Route: 042
     Dates: start: 20090316, end: 20090316
  2. ROCURONIUM BROMIDE [Suspect]
     Indication: MUSCLE RELAXANT THERAPY
     Dosage: INTRAVENOUS (NOS)
     Route: 042
     Dates: start: 20090316, end: 20090316
  3. AMLODIPINE [Concomitant]
  4. ATENOLOL [Concomitant]
  5. ATORVASTATIN [Concomitant]
  6. CLOPIDOGREL [Concomitant]
  7. CO-DYDRAMOL [Concomitant]
  8. FENTANYL [Concomitant]
  9. GLYCERYL TRINITRATE [Concomitant]
  10. LANSOPRAZOLE [Concomitant]
  11. MIDAZOLAM HCL [Concomitant]
  12. NICORANDIL [Concomitant]
  13. PROPOFOL [Concomitant]
  14. RABEPRAZOLE SODIUM [Concomitant]
  15. SOTALOL HYDROCHLORIDE [Concomitant]
  16. TEMAZEPAM [Concomitant]
  17. WARFARIN SODIUM [Concomitant]

REACTIONS (5)
  - ACIDOSIS [None]
  - ANAPHYLACTIC REACTION [None]
  - CARDIO-RESPIRATORY ARREST [None]
  - ELECTROMECHANICAL DISSOCIATION [None]
  - HYPOTENSION [None]
